FAERS Safety Report 5485188-6 (Version None)
Quarter: 2007Q4

REPORT INFORMATION
  Report Type: 
  Country: None (occurrence: None)
  Receive Date: 20071010
  Receipt Date: 20070925
  Transmission Date: 20080405
  Serious: No
  Sender: FDA-Public Use
  Company Number: 13919626

PATIENT
  Age: 23 Year
  Sex: Male

DRUGS (4)
  1. REVIA [Suspect]
     Indication: ALCOHOLISM
     Dates: start: 20070925
  2. SUBUTEX [Suspect]
     Indication: DRUG DEPENDENCE
     Dosage: 8 MILLIGRAM 1/1 DAY
  3. VALIUM [Concomitant]
  4. THIAMINE (THIAMINE) [Concomitant]

REACTIONS (8)
  - ALCOHOLISM [None]
  - BLOOD PRESSURE INCREASED [None]
  - DRUG INTERACTION [None]
  - DRUG WITHDRAWAL SYNDROME [None]
  - HYPERHIDROSIS [None]
  - MEDICATION ERROR [None]
  - STRESS [None]
  - TACHYCARDIA [None]
